FAERS Safety Report 8815952 (Version 1)
Quarter: 2012Q4

REPORT INFORMATION
  Report Type: 
  Country: US (occurrence: US)
  Receive Date: 20120928
  Receipt Date: 20120928
  Transmission Date: 20130627
  Serious: Yes (Other)
  Sender: FDA-Public Use
  Company Number: US-ROCHE-1127694

PATIENT
  Sex: Female

DRUGS (7)
  1. AVASTIN [Suspect]
     Indication: COLON CANCER
     Route: 065
     Dates: start: 20060922, end: 20070216
  2. AVASTIN [Suspect]
     Indication: LUNG NEOPLASM MALIGNANT
  3. XELODA [Suspect]
     Indication: COLON CANCER
     Route: 065
     Dates: end: 200612
  4. XELODA [Suspect]
     Indication: LUNG NEOPLASM MALIGNANT
  5. ERBITUX [Concomitant]
  6. VECTIBIX [Concomitant]
  7. IRINOTECAN [Concomitant]

REACTIONS (5)
  - Hypertension [Unknown]
  - Intestinal obstruction [Unknown]
  - Infection [Unknown]
  - Hernia [Unknown]
  - Disease progression [Unknown]
